FAERS Safety Report 10972020 (Version 25)
Quarter: 2017Q1

REPORT INFORMATION
  Report Type: Report from Study
  Country: None (occurrence: LU)
  Receive Date: 20150331
  Receipt Date: 20170203
  Transmission Date: 20170428
  Serious: Yes (Hospitalization)
  Sender: FDA-Public Use
  Company Number: LU-ABBVIE-15P-098-1366439-00

PATIENT
  Age: 78 Year
  Sex: Male
  Weight: 55 kg

DRUGS (28)
  1. DUODOPA [Suspect]
     Active Substance: CARBIDOPA\LEVODOPA
     Indication: PARKINSON^S DISEASE
     Dosage: AM=5.6ML, CD=2ML/HR DURING 16HRS, ED=1ML
     Route: 050
     Dates: start: 20140131, end: 20140204
  2. DUODOPA [Suspect]
     Active Substance: CARBIDOPA\LEVODOPA
     Dosage: AM = 6 ML, CD = 2.1 ML/H DURING 16H, ED = 1.5 ML
     Route: 050
     Dates: start: 20150430, end: 20150827
  3. PK MERZ [Concomitant]
     Active Substance: AMANTADINE SULFATE
     Indication: PARKINSON^S DISEASE
     Route: 048
  4. DUODOPA [Suspect]
     Active Substance: CARBIDOPA\LEVODOPA
     Dosage: AM DOSE=6ML, CD=2.3ML/H FOR 16HRS AND ED=1.5ML
     Route: 050
     Dates: start: 20150915, end: 20151209
  5. REQUIP [Concomitant]
     Active Substance: ROPINIROLE HYDROCHLORIDE
     Indication: PARKINSON^S DISEASE
     Route: 048
  6. DUODOPA [Suspect]
     Active Substance: CARBIDOPA\LEVODOPA
     Dosage: DOSES CONTINUOUSLY MONITORED AND ADJUSTED
     Route: 050
     Dates: start: 20140204, end: 20141022
  7. DUODOPA [Suspect]
     Active Substance: CARBIDOPA\LEVODOPA
     Dosage: AM=6ML, CD=1.5ML/H FOR 16HRS, ED=1.5ML
     Route: 050
     Dates: start: 20141022, end: 20150326
  8. DUODOPA [Suspect]
     Active Substance: CARBIDOPA\LEVODOPA
     Dosage: AM = 6ML , CD=1.6/HR DURING 16HRS, ED = 1.5 ML
     Route: 050
     Dates: start: 20150326, end: 201504
  9. DUODOPA [Suspect]
     Active Substance: CARBIDOPA\LEVODOPA
     Dosage: AM DOSE=6ML, CD=1.5ML/H FOR 16HRS AND ED=1.5ML
     Route: 050
     Dates: start: 20150915
  10. DUODOPA [Suspect]
     Active Substance: CARBIDOPA\LEVODOPA
     Dosage: MD: 5.5 ML, CD: 3.8 ML/HR DURING 16 HRS, ED: 1.7 ML
     Route: 050
     Dates: start: 20161213
  11. REQUIP [Concomitant]
     Active Substance: ROPINIROLE HYDROCHLORIDE
     Indication: PARKINSON^S DISEASE
     Route: 048
  12. CALCI-CHEW [Concomitant]
     Indication: PRODUCT USED FOR UNKNOWN INDICATION
  13. DUODOPA [Suspect]
     Active Substance: CARBIDOPA\LEVODOPA
     Dosage: AM DOSE=6ML, CD=2.3ML/H FOR 16HRS AND ED=1.5ML
     Route: 050
     Dates: start: 20150827
  14. DUODOPA [Suspect]
     Active Substance: CARBIDOPA\LEVODOPA
     Dosage: AM= 8.5ML, CD=2.5ML/HR X 16 HRS, ED=1.5ML
     Route: 050
     Dates: start: 20151209, end: 20151216
  15. DUODOPA [Suspect]
     Active Substance: CARBIDOPA\LEVODOPA
     Dosage: AM=5.5 ML; CD=3.4 ML/H DURING 16 HRS; ED=1.7 ML
     Route: 050
     Dates: start: 20160823, end: 20160912
  16. STILNOCT [Concomitant]
     Active Substance: ZOLPIDEM TARTRATE
     Indication: PRODUCT USED FOR UNKNOWN INDICATION
     Dosage: IN THE EVENING
  17. OMEP [Concomitant]
     Active Substance: OMEPRAZOLE
     Indication: PARKINSON^S DISEASE
     Route: 048
  18. REQUIP [Concomitant]
     Active Substance: ROPINIROLE HYDROCHLORIDE
     Route: 048
  19. PROLOPA HBS [Concomitant]
     Active Substance: BENSERAZIDE\LEVODOPA
     Indication: PRODUCT USED FOR UNKNOWN INDICATION
     Dosage: FROM STRENGTH : 100MG/25MG IN THE EVENING
  20. MAGNESIUM [Concomitant]
     Active Substance: MAGNESIUM
     Indication: PRODUCT USED FOR UNKNOWN INDICATION
  21. DUODOPA [Suspect]
     Active Substance: CARBIDOPA\LEVODOPA
     Dosage: AM=6ML;CD=1.6ML/HR DURING 16HRS;ED=1.5ML
     Route: 050
     Dates: start: 201504, end: 20150430
  22. DUODOPA [Suspect]
     Active Substance: CARBIDOPA\LEVODOPA
     Dosage: AM= 5.5 ML; CD= 3 ML/H DURING 16 HRS; ED= 1.7 ML
     Route: 050
     Dates: start: 20160803, end: 20160823
  23. DUODOPA [Suspect]
     Active Substance: CARBIDOPA\LEVODOPA
     Dosage: AM= 5.5 ML; CD= 3.5 ML/H DURING 16 HRS; ED= 1.7 ML
     Route: 050
     Dates: start: 20160920, end: 20161213
  24. REQUIP [Concomitant]
     Active Substance: ROPINIROLE HYDROCHLORIDE
     Route: 048
  25. DUODOPA [Suspect]
     Active Substance: CARBIDOPA\LEVODOPA
     Dosage: AM=5.5ML, CD=3.2ML/HR DURING 16HRS, ED=1.7ML
     Route: 050
     Dates: start: 20160912, end: 20160920
  26. DUODOPA [Suspect]
     Active Substance: CARBIDOPA\LEVODOPA
     Dosage: AM= 8.5ML, CD=UNKNOWN, ED=1.5ML
     Route: 050
     Dates: start: 20151216, end: 20160511
  27. DUODOPA [Suspect]
     Active Substance: CARBIDOPA\LEVODOPA
     Dosage: AM=5.5ML, CD=2.7ML/HR X 16 HRS, ED=1.7ML
     Route: 050
     Dates: start: 20160511, end: 20160803
  28. DIFLUCAN [Concomitant]
     Active Substance: FLUCONAZOLE
     Indication: PRODUCT USED FOR UNKNOWN INDICATION
     Route: 050
     Dates: start: 201505

REACTIONS (20)
  - Depersonalisation/derealisation disorder [Unknown]
  - Apathy [Unknown]
  - Mobility decreased [Unknown]
  - Apraxia [Unknown]
  - Dysphagia [Unknown]
  - Weight decreased [Recovering/Resolving]
  - Drug ineffective [Unknown]
  - Device use error [Recovered/Resolved]
  - General physical health deterioration [Recovered/Resolved]
  - Enteral nutrition [Not Recovered/Not Resolved]
  - Loss of consciousness [Unknown]
  - Dysstasia [Recovering/Resolving]
  - Cognitive disorder [Recovering/Resolving]
  - Communication disorder [Unknown]
  - General physical health deterioration [Recovering/Resolving]
  - Pneumonia [Not Recovered/Not Resolved]
  - Speech disorder [Unknown]
  - Drug dose omission [Recovered/Resolved]
  - Asthenia [Recovering/Resolving]
  - Dyskinesia [Unknown]

NARRATIVE: CASE EVENT DATE: 201503
